FAERS Safety Report 4604768-0 (Version None)
Quarter: 2005Q2

REPORT INFORMATION
  Report Type: 
  Country: None (occurrence: None)
  Receive Date: 20050217
  Receipt Date: 20041220
  Transmission Date: 20051028
  Serious: No
  Sender: FDA-Public Use
  Company Number: S04-USA-07880-01

PATIENT
  Age: 89 Year
  Sex: Female

DRUGS (4)
  1. NAMENDA [Suspect]
     Indication: SENILE DEMENTIA
     Dosage: 15 MG QD PO
     Route: 048
     Dates: start: 20041217
  2. NAMENDA [Suspect]
     Indication: SENILE DEMENTIA
     Dosage: 5 MG QD PO
     Route: 048
     Dates: start: 20041203, end: 20041209
  3. NAMENDA [Suspect]
     Indication: SENILE DEMENTIA
     Dosage: 5 MG BID PO
     Route: 048
     Dates: start: 20041210, end: 20041216
  4. VITAMIN B-12 [Concomitant]

REACTIONS (2)
  - AGGRESSION [None]
  - DIARRHOEA [None]
